FAERS Safety Report 4269431-7 (Version None)
Quarter: 2004Q1

REPORT INFORMATION
  Report Type: 
  Country: None (occurrence: None)
  Receive Date: 20040109
  Receipt Date: 20031230
  Transmission Date: 20041129
  Serious: Yes (Hospitalization)
  Sender: FDA-Public Use
  Company Number: 203983

PATIENT
  Age: 50 Year
  Sex: Female

DRUGS (7)
  1. MABTHERA(RITUXIMAB) CONC FOR MABTHERA(RITUXIMAB) CONC FOR INFUSION [Suspect]
     Dates: start: 20030911
  2. CLOZAPINE [Suspect]
     Dosage: ORAL
     Route: 048
     Dates: start: 20030630
  3. OMEPRAZOLE [Suspect]
     Dosage: 20 MG
  4. VALACYCLOVIR HCL [Suspect]
     Dosage: ORAL
     Route: 048
  5. STILNOX (ZOLPIDEM TARTRATE) [Suspect]
     Dosage: ORAL
     Route: 048
  6. LEVOTHYROXINE SODIUM [Suspect]
     Dosage: ORAL
     Route: 048
  7. DUPHALAC [Concomitant]

REACTIONS (4)
  - LYMPHOCYTE COUNT DECREASED [None]
  - MONOCYTE COUNT INCREASED [None]
  - NEUTROPENIA [None]
  - WHITE BLOOD CELL COUNT DECREASED [None]
